FAERS Safety Report 4787838-6 (Version None)
Quarter: 2005Q4

REPORT INFORMATION
  Report Type: 
  Country: None (occurrence: None)
  Receive Date: 20051004
  Receipt Date: 20050908
  Transmission Date: 20060501
  Serious: Yes (Death, Disabling)
  Sender: FDA-Public Use
  Company Number: JP-MERCK-0509USA01372

PATIENT
  Age: 83 Year
  Sex: Male

DRUGS (10)
  1. PRIMAXIN [Suspect]
     Indication: BRONCHITIS
     Route: 041
     Dates: start: 20050817, end: 20050829
  2. SOYBEAN OIL [Suspect]
     Indication: NUTRITIONAL SUPPORT
     Route: 042
     Dates: start: 20050823, end: 20050905
  3. ACETAMINOPHEN [Concomitant]
     Indication: PYREXIA
     Route: 054
  4. SALTNIN [Concomitant]
     Route: 042
     Dates: start: 20050816
  5. NEOLAMIN 3B INTRAVENOUS [Concomitant]
     Route: 042
     Dates: start: 20050806, end: 20050905
  6. [THERAPY UNSPECIFIED] [Concomitant]
     Route: 042
     Dates: start: 20050819
  7. [THERAPY UNSPECIFIED] [Concomitant]
     Route: 042
     Dates: start: 20050823
  8. [THERAPY UNSPECIFIED] [Concomitant]
     Route: 042
     Dates: start: 20050806, end: 20050821
  9. DEXTROSE AND ELECTROLYTES (UNSPECIFIED) [Concomitant]
     Route: 042
     Dates: start: 20050806, end: 20050823
  10. FLUMARIN [Concomitant]
     Route: 042
     Dates: start: 20050806, end: 20050815

REACTIONS (6)
  - BLOOD PRESSURE DECREASED [None]
  - BRONCHITIS [None]
  - HAEMORRHAGE SUBCUTANEOUS [None]
  - MOUTH HAEMORRHAGE [None]
  - PANCYTOPENIA [None]
  - PNEUMONIA [None]
